FAERS Safety Report 19510802 (Version 2)
Quarter: 2021Q3

REPORT INFORMATION
  Report Type: Other
  Country: GB (occurrence: GB)
  Receive Date: 20210709
  Receipt Date: 20210823
  Transmission Date: 20211014
  Serious: No
  Sender: FDA-Public Use
  Company Number: GB-LUPIN PHARMACEUTICALS INC.-2021-10945

PATIENT
  Sex: Female

DRUGS (1)
  1. SIMVASTATIN. [Suspect]
     Active Substance: SIMVASTATIN
     Indication: PRODUCT USED FOR UNKNOWN INDICATION
     Dosage: UNK (TOOK THEM FOR ABOUT 18 MONTHS)
     Route: 065
     Dates: start: 20080909, end: 20100107

REACTIONS (3)
  - Muscular weakness [Unknown]
  - Paraesthesia [Unknown]
  - Lethargy [Unknown]
